FAERS Safety Report 9727949 (Version 2)
Quarter: 2013Q4

REPORT INFORMATION
  Report Type: Spontaneous
  Country: CA (occurrence: CA)
  Receive Date: 20131204
  Receipt Date: 20131219
  Transmission Date: 20140711
  Serious: Yes (Other)
  Sender: FDA-Public Use
  Company Number: CA-AMGEN-CANSP2013084298

PATIENT
  Age: 77 Year
  Sex: Female
  Weight: 58.96 kg

DRUGS (11)
  1. PROLIA [Suspect]
     Indication: OSTEOPOROSIS POSTMENOPAUSAL
     Dosage: 60 MG, Q6MO
     Dates: start: 20120423
  2. CLAVULIN                           /00756801/ [Concomitant]
     Dosage: 500 UNK, TID
     Dates: start: 20131122
  3. NAPROSYN E [Concomitant]
     Dosage: 375 MG, BID
     Route: 065
     Dates: start: 20130509
  4. NASONEX [Concomitant]
     Dosage: 50 MUG, QD
     Dates: start: 20120419
  5. NEXIUM                             /01479302/ [Concomitant]
     Dosage: 40 MG, BID
     Dates: start: 20120419
  6. PLAQUENIL                          /00072602/ [Concomitant]
     Dosage: 200 MG, QD
     Dates: start: 20120419
  7. PROZAC [Concomitant]
     Dosage: 10 MG, QD
     Dates: start: 20120419
  8. RESTASIS [Concomitant]
     Dosage: 1 GTT, Q12H
     Route: 047
     Dates: start: 20120419
  9. SOFLAX                             /00061602/ [Concomitant]
     Dosage: 100 MG, QD
     Dates: start: 20120419
  10. SPIRIVA [Concomitant]
     Dosage: 18 MUG, QD
     Dates: start: 20131121
  11. SYNTHROID [Concomitant]
     Dosage: 1 MG, QD
     Dates: start: 20130613

REACTIONS (1)
  - Lower respiratory tract infection [Unknown]
